FAERS Safety Report 8515685-8 (Version None)
Quarter: 2012Q3

REPORT INFORMATION
  Report Type: 
  Country: None (occurrence: None)
  Receive Date: 20120717
  Receipt Date: 20120713
  Transmission Date: 20120928
  Serious: Yes (Hospitalization)
  Sender: FDA-Public Use
  Company Number: PHHY2012PE060595

PATIENT
  Sex: Male

DRUGS (1)
  1. SIMULECT [Suspect]
     Indication: RENAL TRANSPLANT
     Route: 042
     Dates: start: 20120701

REACTIONS (5)
  - COMPLICATIONS OF TRANSPLANTED KIDNEY [None]
  - HAEMATURIA [None]
  - RENAL VEIN THROMBOSIS [None]
  - KIDNEY TRANSPLANT REJECTION [None]
  - HYPOTENSION [None]
